FAERS Safety Report 13431231 (Version 1)
Quarter: 2017Q2

REPORT INFORMATION
  Report Type: Spontaneous
  Country: SE (occurrence: SE)
  Receive Date: 20170412
  Receipt Date: 20170412
  Transmission Date: 20170830
  Serious: Yes (Other)
  Sender: FDA-Public Use
  Company Number: SE-TEVA-755837ACC

PATIENT
  Age: 79 Year
  Sex: Female

DRUGS (9)
  1. BETOLVIDON 1 MG TABLET [Concomitant]
  2. ZOPIKLON PILUM 5 MG FILM-COATED TABLET [Concomitant]
     Dates: start: 20170228
  3. LEVETIRACETAM ACTAVIS GROUP 100 MG/ML ORAL SOLUTION [Suspect]
     Active Substance: LEVETIRACETAM
     Dates: start: 20170228
  4. TROMBYL 75 MG TABLET [Concomitant]
     Active Substance: ASPIRIN
  5. ALVEDON 665 MG MODIFIED-RELEASE TABLET [Concomitant]
     Active Substance: ACETAMINOPHEN
  6. SINCON  EYE DROPS, SOLUTION IN SINGLE-DOSE [Concomitant]
  7. SELOKEN 50 MG TABLET [Concomitant]
     Dates: start: 20170228
  8. MINIDERM 20 % CREAM [Concomitant]
  9. STESOLID 5 MG RECTAL SOLUTION [Concomitant]
     Dates: start: 20170228

REACTIONS (1)
  - Hallucination, visual [Unknown]

NARRATIVE: CASE EVENT DATE: 201702
